FAERS Safety Report 6685413-X (Version None)
Quarter: 2010Q2

REPORT INFORMATION
  Report Type: 
  Country: None (occurrence: None)
  Receive Date: 20100418
  Receipt Date: 20100317
  Transmission Date: 20101027
  Serious: No
  Sender: FDA-Public Use
  Company Number: US-BAYER-201013306BCC

PATIENT
  Age: 66 Year
  Sex: Female
  Weight: 73 kg

DRUGS (7)
  1. ALEVE (CAPLET) [Suspect]
     Indication: ARTHRALGIA
     Dosage: TOTAL DAILY DOSE: 880 MG  UNIT DOSE: 220 MG
     Route: 048
  2. BAYER 81MG LOW DOSE [Concomitant]
     Route: 065
  3. FISH OIL [Concomitant]
     Route: 065
  4. TRIFLEX [Concomitant]
     Route: 065
  5. B-COMPLEX 50 [Concomitant]
     Route: 065
  6. MATURE MULTI-VITAMIN [Concomitant]
     Route: 065
  7. CALCIUM [Concomitant]
     Route: 065

REACTIONS (2)
  - ABDOMINAL PAIN UPPER [None]
  - CONSTIPATION [None]
